FAERS Safety Report 4471776-2 (Version None)
Quarter: 2004Q4

REPORT INFORMATION
  Report Type: 
  Country: None (occurrence: None)
  Receive Date: 20041006
  Receipt Date: 20040927
  Transmission Date: 20050328
  Serious: Yes (Other)
  Sender: FDA-Public Use
  Company Number: 2004236115GB

PATIENT
  Age: 78 Year
  Sex: Male

DRUGS (4)
  1. CABERGOLINE [Suspect]
     Indication: PARKINSON'S DISEASE
     Dosage: 1 MG, QD, ORAL
     Route: 048
     Dates: start: 20040601, end: 20040824
  2. SINEMET [Concomitant]
  3. ASPIRIN [Concomitant]
  4. ATENOLOL [Concomitant]

REACTIONS (1)
  - JAUNDICE CHOLESTATIC [None]
